FAERS Safety Report 18419435 (Version 1)
Quarter: 2020Q4

REPORT INFORMATION
  Report Type: Spontaneous
  Country: US (occurrence: US)
  Receive Date: 20201023
  Receipt Date: 20201023
  Transmission Date: 20210114
  Serious: No
  Sender: FDA-Public Use
  Company Number: None

PATIENT
  Age: 66 Year
  Sex: Male
  Weight: 58.5 kg

DRUGS (3)
  1. JAKAFI [Suspect]
     Active Substance: RUXOLITINIB
     Route: 048
     Dates: start: 20200724
  2. FERROUS SULFATE. [Concomitant]
     Active Substance: FERROUS SULFATE
     Dates: start: 20200724
  3. HYDROXYUREA. [Concomitant]
     Active Substance: HYDROXYUREA
     Dates: start: 20200724

REACTIONS (1)
  - Weight increased [None]

NARRATIVE: CASE EVENT DATE: 20201023
